FAERS Safety Report 11515013 (Version 5)
Quarter: 2018Q4

REPORT INFORMATION
  Report Type: Spontaneous
  Country: US (occurrence: US)
  Receive Date: 20150916
  Receipt Date: 20181113
  Transmission Date: 20190204
  Serious: Yes (Death, Hospitalization)
  Sender: FDA-Public Use
  Company Number: US-DSJP-DSU-2015-128364

PATIENT

DRUGS (2)
  1. BENICAR [Suspect]
     Active Substance: OLMESARTAN MEDOXOMIL
     Indication: HYPERTENSION
     Dosage: 40 MG, QD
     Route: 048
     Dates: start: 2008, end: 20130822
  2. BUTALBITAL/ASA/CAFFEINE [Concomitant]
     Indication: PRODUCT USED FOR UNKNOWN INDICATION

REACTIONS (5)
  - Pulmonary embolism [Fatal]
  - Sprue-like enteropathy [Fatal]
  - Hiatus hernia [Unknown]
  - Umbilical hernia [Unknown]
  - Protein-losing gastroenteropathy [Unknown]

NARRATIVE: CASE EVENT DATE: 2013
